FAERS Safety Report 19467143 (Version 1)
Quarter: 2021Q2

REPORT INFORMATION
  Report Type: Spontaneous
  Country: US (occurrence: US)
  Receive Date: 20210628
  Receipt Date: 20210628
  Transmission Date: 20210717
  Serious: No
  Sender: FDA-Public Use
  Company Number: US-ELI_LILLY_AND_COMPANY-US202106013281

PATIENT
  Age: 70 Year
  Sex: Female

DRUGS (5)
  1. INSULIN LISPRO LILLY [Suspect]
     Active Substance: INSULIN LISPRO
     Dosage: 25 U, UNKNOWN(20?25 UNITS)
     Route: 065
     Dates: start: 2019
  2. INSULIN LISPRO LILLY [Suspect]
     Active Substance: INSULIN LISPRO
     Dosage: 25 U, UNKNOWN(20?25 UNITS)
     Route: 065
     Dates: start: 2019
  3. LANTUS [Concomitant]
     Active Substance: INSULIN GLARGINE
     Indication: TYPE 2 DIABETES MELLITUS
     Dosage: 40 U, DAILY(AT NIGHT)
  4. INSULIN LISPRO LILLY [Suspect]
     Active Substance: INSULIN LISPRO
     Indication: TYPE 2 DIABETES MELLITUS
     Dosage: 25 U, UNKNOWN(20?25 UNITS)
     Route: 065
  5. INSULIN LISPRO LILLY [Suspect]
     Active Substance: INSULIN LISPRO
     Indication: TYPE 2 DIABETES MELLITUS
     Dosage: 25 U, UNKNOWN(20?25 UNITS)
     Route: 065

REACTIONS (2)
  - Blood glucose increased [Recovering/Resolving]
  - Injury associated with device [Recovered/Resolved]

NARRATIVE: CASE EVENT DATE: 202106
